FAERS Safety Report 19052208 (Version 2)
Quarter: 2021Q2

REPORT INFORMATION
  Report Type: Spontaneous
  Country: AL (occurrence: AL)
  Receive Date: 20210324
  Receipt Date: 20210401
  Transmission Date: 20210717
  Serious: Yes (Death, Hospitalization, Other)
  Sender: FDA-Public Use
  Company Number: AL-AMGEN-ALBSP2021041928

PATIENT
  Age: 70 Year
  Sex: Male

DRUGS (5)
  1. CEFEPIME [Concomitant]
     Active Substance: CEFEPIME HYDROCHLORIDE
     Dosage: UNK
  2. METHOTREXATE. [Concomitant]
     Active Substance: METHOTREXATE
     Dosage: UNK
  3. LEVOFLOXACIN. [Concomitant]
     Active Substance: LEVOFLOXACIN
     Dosage: UNK
  4. NEUPOGEN [Suspect]
     Active Substance: FILGRASTIM
     Indication: PANCYTOPENIA
     Dosage: 300 MILLIGRAM
     Route: 065
  5. METRONIDAZOLE. [Concomitant]
     Active Substance: METRONIDAZOLE
     Dosage: 500 MILLIGRAM (X3)

REACTIONS (3)
  - Erythrodermic psoriasis [Unknown]
  - Off label use [Unknown]
  - Cardio-respiratory arrest [Fatal]
